FAERS Safety Report 8321797-4 (Version None)
Quarter: 2012Q2

REPORT INFORMATION
  Report Type: 
  Country: None (occurrence: None)
  Receive Date: 20120426
  Receipt Date: 20120413
  Transmission Date: 20120825
  Serious: Yes (Other)
  Sender: FDA-Public Use
  Company Number: 2012AP001027

PATIENT
  Age: 61 Year
  Sex: Male

DRUGS (8)
  1. VENTOLIN [Concomitant]
  2. SALMETEROL (SALMETEROL) [Concomitant]
  3. SIMVASTATIN [Concomitant]
  4. RAMIPRIL [Suspect]
     Indication: PRODUCT USED FOR UNKNOWN INDICATION
     Dates: start: 20120319
  5. NAPROXEN [Concomitant]
  6. CO-DYDRAMOL (PARAMOL-118) [Concomitant]
  7. FELODIPINE [Concomitant]
  8. PIROXICAM [Concomitant]

REACTIONS (2)
  - SUICIDAL IDEATION [None]
  - DEPRESSION [None]
